FAERS Safety Report 9594446 (Version 3)
Quarter: 2013Q4

REPORT INFORMATION
  Report Type: Report from Study
  Country: FR (occurrence: FR)
  Receive Date: 20131004
  Receipt Date: 20131108
  Transmission Date: 20140711
  Serious: Yes (Death, Other)
  Sender: FDA-Public Use
  Company Number: FR-009507513-1310FRA001808

PATIENT
  Sex: 0

DRUGS (3)
  1. ISENTRESS [Suspect]
     Dosage: 800 MG, UNK
     Route: 064
  2. PREZISTA [Suspect]
     Dosage: 800 MG, QD
     Route: 064
     Dates: start: 20110615
  3. NORVIR [Suspect]
     Dosage: 100 MG, QD
     Route: 064
     Dates: start: 20110615

REACTIONS (2)
  - Congenital anomaly [Fatal]
  - Foetal exposure during pregnancy [Fatal]
